FAERS Safety Report 9053632 (Version 1)
Quarter: 2013Q1

REPORT INFORMATION
  Report Type: Spontaneous
  Country: US (occurrence: None)
  Receive Date: 20130201
  Receipt Date: 20130201
  Transmission Date: 20140127
  Serious: No
  Sender: FDA-Public Use
  Company Number: None

PATIENT
  Age: 60 Year
  Sex: Female

DRUGS (1)
  1. ZOLPIDEM 10MG QUALITIEST [Suspect]
     Indication: INSOMNIA
     Route: 048

REACTIONS (3)
  - Somnambulism [None]
  - Sleep-related eating disorder [None]
  - Abnormal sleep-related event [None]
